FAERS Safety Report 9201856 (Version 2)
Quarter: 2013Q2

REPORT INFORMATION
  Report Type: Spontaneous
  Country: US (occurrence: US)
  Receive Date: 20130401
  Receipt Date: 20130612
  Transmission Date: 20140414
  Serious: Yes (Hospitalization)
  Sender: FDA-Public Use
  Company Number: US-ELI_LILLY_AND_COMPANY-US201303008231

PATIENT
  Age: 53 Year
  Sex: Male

DRUGS (7)
  1. EFFIENT [Suspect]
     Indication: STENT PLACEMENT
     Dosage: 60 MG, SINGLE
     Dates: start: 20130315
  2. EFFIENT [Suspect]
     Dosage: 10 MG, QD
  3. BETA BLOCKING AGENTS [Concomitant]
  4. STATIN                             /00084401/ [Concomitant]
  5. ASPIRIN [Concomitant]
  6. ACE INHIBITORS [Concomitant]
  7. ANGIOMAX [Concomitant]
     Dosage: UNK

REACTIONS (3)
  - Acute myocardial infarction [Recovered/Resolved]
  - Thrombosis in device [Recovered/Resolved]
  - Arterial disorder [Recovered/Resolved]
